FAERS Safety Report 12803084 (Version 2)
Quarter: 2017Q1

REPORT INFORMATION
  Report Type: Spontaneous
  Country: PT (occurrence: PT)
  Receive Date: 20161003
  Receipt Date: 20170112
  Transmission Date: 20170428
  Serious: Yes (Hospitalization)
  Sender: FDA-Public Use
  Company Number: PT-PROMETHEUS LABORATORIES-2016PL000058

PATIENT
  Age: 4 Year
  Sex: Male

DRUGS (12)
  1. PROLEUKIN [Suspect]
     Active Substance: ALDESLEUKIN
     Indication: NEUROBLASTOMA
     Dosage: UNK UNKNOWN, UNK
     Route: 042
  2. GRANULOCYTE MACROPHAGE COLONY STIM FACTOR [Suspect]
     Active Substance: GRANULOCYTE-MACROPHAGE COLONY-STIMULATING FACTOR
     Indication: NEUROBLASTOMA
     Dosage: UNK UNKNOWN, UNK
     Route: 042
  3. CLEMASTINE [Concomitant]
     Active Substance: CLEMASTINE
  4. PROLEUKIN [Suspect]
     Active Substance: ALDESLEUKIN
     Dosage: 4.5 MILLION IU, SEE NARRATIVE
     Route: 042
     Dates: start: 20160829
  5. PARACETAMOL [Concomitant]
     Active Substance: ACETAMINOPHEN
  6. GABAPENTINE [Concomitant]
     Active Substance: GABAPENTIN
  7. SARGRAMOSTIM [Concomitant]
     Active Substance: SARGRAMOSTIM
  8. UNITUXIN [Suspect]
     Active Substance: DINUTUXIMAB
     Indication: NEUROBLASTOMA
     Dosage: 17.5 MG/M2, UNK
     Route: 042
     Dates: start: 20160718, end: 20160721
  9. UNITUXIN [Suspect]
     Active Substance: DINUTUXIMAB
     Dosage: 17.5 MG/M2, DAILY AS NEEDED
     Route: 042
     Dates: start: 20160818, end: 20160821
  10. COTRIMOXAZOLE [Concomitant]
     Active Substance: SULFAMETHOXAZOLE\TRIMETHOPRIM
  11. UNITUXIN [Suspect]
     Active Substance: DINUTUXIMAB
     Dosage: UNK UNKNOWN, UNK
     Route: 042
     Dates: start: 20160829
  12. MORPHINE [Suspect]
     Active Substance: MORPHINE
     Indication: PRODUCT USED FOR UNKNOWN INDICATION
     Dosage: UNK UNKNOWN, UNK
     Route: 065

REACTIONS (15)
  - Bronchospasm [Not Recovered/Not Resolved]
  - Pyrexia [Recovered/Resolved]
  - Pain in extremity [Not Recovered/Not Resolved]
  - Tachycardia [Recovered/Resolved]
  - Decreased appetite [Not Recovered/Not Resolved]
  - Diarrhoea [Not Recovered/Not Resolved]
  - Oliguria [Recovered/Resolved]
  - Eyelid oedema [Recovered/Resolved]
  - Chills [Recovered/Resolved]
  - Injection site inflammation [Not Recovered/Not Resolved]
  - Somnolence [Recovered/Resolved]
  - Weight increased [Not Recovered/Not Resolved]
  - Hypoxia [Not Recovered/Not Resolved]
  - Hypotension [Not Recovered/Not Resolved]
  - Livedo reticularis [Recovered/Resolved]

NARRATIVE: CASE EVENT DATE: 20160804
